FAERS Safety Report 12811243 (Version 1)
Quarter: 2016Q4

REPORT INFORMATION
  Report Type: Spontaneous
  Country: VE (occurrence: VE)
  Receive Date: 20161005
  Receipt Date: 20161005
  Transmission Date: 20170207
  Serious: Yes (Other)
  Sender: FDA-Public Use
  Company Number: VE-PFIZER INC-2016462617

PATIENT
  Age: 45 Year
  Sex: Male

DRUGS (4)
  1. ZYVOX [Suspect]
     Active Substance: LINEZOLID
     Dosage: UNK
     Dates: start: 20151228, end: 20160106
  2. MEROPENEM. [Suspect]
     Active Substance: MEROPENEM
     Dosage: UNK
     Dates: start: 20151228, end: 20151230
  3. OSELTAMIVIR [Suspect]
     Active Substance: OSELTAMIVIR
     Dosage: UNK
     Dates: start: 20151228
  4. MOXIFLOXACINO [Suspect]
     Active Substance: MOXIFLOXACIN HYDROCHLORIDE
     Dosage: UNK
     Dates: start: 20151228, end: 20160106

REACTIONS (12)
  - Pyrexia [Unknown]
  - Acinetobacter infection [Unknown]
  - Hypertransaminasaemia [Unknown]
  - Pseudomonas infection [Unknown]
  - Respiratory distress [Unknown]
  - Oliguria [Unknown]
  - Blood urea nitrogen/creatinine ratio increased [Unknown]
  - Sepsis [None]
  - Hypotension [Unknown]
  - Tachycardia [Unknown]
  - Respiratory rate increased [Unknown]
  - Pulmonary function test decreased [Unknown]

NARRATIVE: CASE EVENT DATE: 20160109
